FAERS Safety Report 4692303-0 (Version None)
Quarter: 2005Q2

REPORT INFORMATION
  Report Type: 
  Country: None (occurrence: None)
  Receive Date: 20050614
  Receipt Date: 20050601
  Transmission Date: 20051028
  Serious: Yes (Hospitalization, Other)
  Sender: FDA-Public Use
  Company Number: 2005074408

PATIENT
  Age: 52 Year
  Sex: Male
  Weight: 64.6 kg

DRUGS (15)
  1. AZITHROMYCIN [Suspect]
     Indication: PNEUMONIA
     Dosage: 500 MG (500 MG, 1 IN 1 D) INTRAVENOUS
     Route: 042
     Dates: start: 20041014, end: 20041015
  2. AZITHROMYCIN [Suspect]
     Indication: PNEUMONIA
     Dosage: 500 MG ORAL
     Route: 048
     Dates: start: 20041016, end: 20041021
  3. METROMYCIN (NETILMICIN SULFATE) [Concomitant]
  4. CERADOLAN (CEFOTIAM HEXETIL HYDROCHLORIDE) [Concomitant]
  5. FLUMARIN (FLOMOXEF SODIUM) [Concomitant]
  6. TAZIME (CEFTAZIDIME PENTAHYDRATE) [Concomitant]
  7. ISEPACIN (ISEPAMICIN SULFATE) [Concomitant]
  8. LASIX [Concomitant]
  9. ALDACTONE [Concomitant]
  10. TAGAMET (CIMETIDINE HYDROCHLORIDE) [Concomitant]
  11. MUTERAN (ACETYLCYSTEINE) [Concomitant]
  12. BEARSE (DIGESTIVES, INCL ENZYMES) [Concomitant]
  13. SOMALGEN (TALNIFLUMATE) [Concomitant]
  14. BISOLVON (BROMHEXINE HYDROCHLORIDE) [Concomitant]
  15. TRIDOL (TRAMADOL HYDROCHLORIDE) [Concomitant]

REACTIONS (3)
  - DRUG INEFFECTIVE [None]
  - PLEURAL ADHESION [None]
  - TUBERCULOUS PLEURISY [None]
